FAERS Safety Report 4630140-3 (Version None)
Quarter: 2005Q2

REPORT INFORMATION
  Report Type: 
  Country: None (occurrence: None)
  Receive Date: 20050408
  Receipt Date: 20050331
  Transmission Date: 20051028
  Serious: Yes (Other)
  Sender: FDA-Public Use
  Company Number: NL-GLAXOSMITHKLINE-B0377052A

PATIENT
  Sex: Male

DRUGS (1)
  1. ABACAVIR SULFATE + LAMIVUDINE + ZIDOVUDINE [Suspect]
     Indication: ILL-DEFINED DISORDER
     Route: 065
     Dates: start: 20031001

REACTIONS (2)
  - ILLUSION [None]
  - VISUAL ACUITY REDUCED [None]
